FAERS Safety Report 10144876 (Version 2)
Quarter: 2016Q3

REPORT INFORMATION
  Report Type: Spontaneous
  Country: US (occurrence: US)
  Receive Date: 20140430
  Receipt Date: 20160921
  Transmission Date: 20161108
  Serious: Yes (Other)
  Sender: FDA-Public Use
  Company Number: US-SA-2014SA024567

PATIENT
  Age: 28 Year
  Sex: Female

DRUGS (1)
  1. LOVENOX [Suspect]
     Active Substance: ENOXAPARIN SODIUM
     Indication: PREGNANCY
     Route: 065
     Dates: start: 2014

REACTIONS (2)
  - Antiphospholipid syndrome [Not Recovered/Not Resolved]
  - Exposure during pregnancy [Unknown]
